FAERS Safety Report 8710337 (Version 2)
Quarter: 2013Q4

REPORT INFORMATION
  Report Type: Spontaneous
  Country: US (occurrence: US)
  Receive Date: 20120807
  Receipt Date: 20131101
  Transmission Date: 20140711
  Serious: No
  Sender: FDA-Public Use
  Company Number: US-009507513-1207USA001526

PATIENT
  Sex: Male
  Weight: 85.26 kg

DRUGS (7)
  1. VICTRELIS [Suspect]
     Dosage: 800 MG, TID
     Route: 048
     Dates: start: 20120629
  2. PEGINTRON [Suspect]
     Route: 058
  3. REBETOL [Suspect]
     Route: 048
  4. LORAZEPAM [Concomitant]
  5. CYANOCOBALAMIN [Concomitant]
  6. ADVIL [Concomitant]
  7. ACIPHEX [Concomitant]

REACTIONS (1)
  - Dysgeusia [Unknown]
